FAERS Safety Report 23202152 (Version 1)
Quarter: 2023Q4

REPORT INFORMATION
  Report Type: Spontaneous
  Country: FR (occurrence: FR)
  Receive Date: 20231120
  Receipt Date: 20231120
  Transmission Date: 20240109
  Serious: Yes (Life-Threatening, Hospitalization)
  Sender: FDA-Public Use
  Company Number: FR-DECIPHERA PHARMACEUTICALS LLC-2023FR000993

PATIENT
  Age: 82 Year
  Sex: Male
  Weight: 50 kg

DRUGS (6)
  1. QINLOCK [Suspect]
     Active Substance: RIPRETINIB
     Indication: Gastrointestinal stromal tumour
     Dosage: 100 MILLIGRAM, QD
     Route: 048
     Dates: start: 20230804, end: 20231020
  2. ASPIRIN [Concomitant]
     Active Substance: ASPIRIN
     Indication: Product used for unknown indication
     Dosage: 75 MILLIGRAM
  3. PERINDOPRIL ERBUMINE [Concomitant]
     Active Substance: PERINDOPRIL ERBUMINE
     Indication: Product used for unknown indication
     Dosage: UNK
  4. NICARDIPINE [Concomitant]
     Active Substance: NICARDIPINE
     Indication: Product used for unknown indication
     Dosage: UNK
  5. METFORMIN [Concomitant]
     Active Substance: METFORMIN HYDROCHLORIDE
     Indication: Product used for unknown indication
     Dosage: UNK
  6. SITAGLIPTIN [Concomitant]
     Active Substance: SITAGLIPTIN
     Indication: Product used for unknown indication
     Dosage: 100 MILLIGRAM

REACTIONS (15)
  - Ventricular dysfunction [Recovered/Resolved with Sequelae]
  - Cardiac failure [Recovered/Resolved with Sequelae]
  - Pulmonary arterial hypertension [Unknown]
  - Renal failure [Unknown]
  - Pleural effusion [Unknown]
  - Coronary artery stenosis [Unknown]
  - Arteriosclerosis coronary artery [Unknown]
  - Ischaemic cardiomyopathy [Unknown]
  - Cholelithiasis [Unknown]
  - Renal cyst [Unknown]
  - Akinesia [Unknown]
  - Benign prostatic hyperplasia [Unknown]
  - Disease progression [Unknown]
  - Adverse event [Unknown]
  - Underdose [Unknown]

NARRATIVE: CASE EVENT DATE: 20230804
